FAERS Safety Report 8791499 (Version 1)
Quarter: 2012Q4

REPORT INFORMATION
  Report Type: Spontaneous
  Country: US (occurrence: None)
  Receive Date: 20120910
  Receipt Date: 20120910
  Transmission Date: 20130627
  Serious: Yes (Other)
  Sender: FDA-Public Use
  Company Number: GAM-178-12-FR

PATIENT
  Age: 27 Year

DRUGS (4)
  1. OCTAGAM [Suspect]
     Route: 042
  2. INSULIN [Concomitant]
  3. TOPIRAMATE [Concomitant]
  4. CARBAMAZEPINE [Suspect]

REACTIONS (1)
  - Hyperglycaemia [None]
